FAERS Safety Report 6685228-2 (Version None)
Quarter: 2010Q2

REPORT INFORMATION
  Report Type: 
  Country: None (occurrence: None)
  Receive Date: 20100416
  Receipt Date: 20100408
  Transmission Date: 20101027
  Serious: Yes (Hospitalization, Disabling)
  Sender: FDA-Public Use
  Company Number: FR-ABBOTT-10P-056-0637432-00

PATIENT
  Age: 5 Year
  Sex: Female

DRUGS (1)
  1. DEPAKENE [Suspect]
     Indication: DRUG EXPOSURE DURING PREGNANCY
     Route: 064
     Dates: start: 20040101, end: 20041101

REACTIONS (7)
  - COUGH [None]
  - DRUG EXPOSURE DURING PREGNANCY [None]
  - DYSKINESIA [None]
  - DYSPHAGIA [None]
  - NEUROMYOPATHY [None]
  - PSYCHOMOTOR RETARDATION [None]
  - SPEECH DISORDER [None]
